FAERS Safety Report 21235114 (Version 1)
Quarter: 2022Q3

REPORT INFORMATION
  Report Type: Report from Study
  Country: CN (occurrence: None)
  Receive Date: 20220821
  Receipt Date: 20220821
  Transmission Date: 20221027
  Serious: Yes (Life-Threatening)
  Sender: FDA-Public Use
  Company Number: 2021A801062

PATIENT
  Age: 66 Year
  Sex: Female

DRUGS (14)
  1. DURVALUMAB [Suspect]
     Active Substance: DURVALUMAB
     Indication: Oesophageal squamous cell carcinoma
     Dosage: 1500 MG
     Route: 042
     Dates: start: 20211103, end: 20211103
  2. DURVALUMAB [Suspect]
     Active Substance: DURVALUMAB
     Indication: Oesophageal squamous cell carcinoma
     Dosage: 1500 MG
     Route: 042
     Dates: start: 20211202, end: 20211202
  3. DURVALUMAB [Suspect]
     Active Substance: DURVALUMAB
     Indication: Oesophageal squamous cell carcinoma
     Dosage: 1500 MG
     Route: 042
     Dates: start: 20211231, end: 20211231
  4. DURVALUMAB [Suspect]
     Active Substance: DURVALUMAB
     Indication: Oesophageal squamous cell carcinoma
     Dosage: 1500 MG
     Route: 042
     Dates: start: 20220128, end: 20220128
  5. DURVALUMAB [Suspect]
     Active Substance: DURVALUMAB
     Indication: Oesophageal squamous cell carcinoma
     Dosage: 1500 MG
     Route: 042
     Dates: start: 20220223, end: 20220223
  6. DURVALUMAB [Suspect]
     Active Substance: DURVALUMAB
     Indication: Oesophageal squamous cell carcinoma
     Dosage: 1500 MG
     Route: 042
     Dates: start: 20220324, end: 20220324
  7. CISPLATIN [Suspect]
     Active Substance: CISPLATIN
     Indication: Oesophageal squamous cell carcinoma
     Dosage: 75 MG/M2
     Route: 065
     Dates: start: 20211103, end: 20211103
  8. CISPLATIN [Suspect]
     Active Substance: CISPLATIN
     Indication: Oesophageal squamous cell carcinoma
     Dosage: 55 MG/M2
     Route: 065
     Dates: start: 20211203, end: 20211203
  9. FLUOROURACIL [Suspect]
     Active Substance: FLUOROURACIL
     Indication: Oesophageal squamous cell carcinoma
     Dosage: 750 MG/M2
     Route: 065
     Dates: start: 20211104, end: 20211107
  10. FLUOROURACIL [Suspect]
     Active Substance: FLUOROURACIL
     Indication: Oesophageal squamous cell carcinoma
     Dosage: 544 MG/M2
     Route: 065
     Dates: start: 20211204, end: 20211208
  11. INVESTIGATIONAL PRODUCT [Suspect]
     Active Substance: INVESTIGATIONAL PRODUCT
     Indication: Oesophageal squamous cell carcinoma
     Route: 065
  12. CAPTOPRIL [Concomitant]
     Active Substance: CAPTOPRIL
     Indication: Hypertension
     Route: 048
     Dates: start: 2001
  13. NITRENDIPINE TABLETS [Concomitant]
     Indication: Hypertension
     Route: 048
     Dates: start: 2001
  14. OLANZAPINE [Concomitant]
     Active Substance: OLANZAPINE
     Indication: Gastrointestinal disorder
     Route: 048
     Dates: start: 20211106, end: 20211110

REACTIONS (2)
  - Hyponatraemia [Recovered/Resolved]
  - Hypokalaemia [Recovered/Resolved]

NARRATIVE: CASE EVENT DATE: 20211107
